FAERS Safety Report 12003814 (Version 2)
Quarter: 2016Q1

REPORT INFORMATION
  Report Type: Spontaneous
  Country: US (occurrence: US)
  Receive Date: 20160204
  Receipt Date: 20160217
  Transmission Date: 20160526
  Serious: No
  Sender: FDA-Public Use
  Company Number: ALCN2016US000979

PATIENT
  Age: 73 Year
  Sex: Female

DRUGS (3)
  1. ANTIBIOTICS FOR TOPICAL USE [Concomitant]
     Active Substance: UNSPECIFIED INGREDIENT
     Indication: GLAUCOMA
     Dosage: 1 GTT, ONCE/SINGLE
     Route: 047
  2. TIMOLOL. [Suspect]
     Active Substance: TIMOLOL
     Dosage: 1 GTT, NO TREATMENT
     Route: 047
     Dates: start: 201601, end: 201601
  3. AZOPT [Suspect]
     Active Substance: BRINZOLAMIDE
     Indication: GLAUCOMA
     Dosage: 1 GTT, BID
     Route: 047

REACTIONS (5)
  - Wrong drug administered [Recovered/Resolved]
  - Drug dispensing error [Recovered/Resolved]
  - Palpitations [Recovered/Resolved]
  - Headache [Recovered/Resolved]
  - Product use issue [Recovered/Resolved]

NARRATIVE: CASE EVENT DATE: 201601
